FAERS Safety Report 10083782 (Version 11)
Quarter: 2015Q1

REPORT INFORMATION
  Report Type: Report from Study
  Country: JP (occurrence: JP)
  Receive Date: 20140417
  Receipt Date: 20150302
  Transmission Date: 20150720
  Serious: Yes (Hospitalization)
  Sender: FDA-Public Use
  Company Number: JP-ROCHE-1371409

PATIENT
  Age: 78 Year
  Sex: Male
  Weight: 64.45 kg

DRUGS (40)
  1. CAPECITABINE. [Suspect]
     Active Substance: CAPECITABINE
     Dosage: 75 % DOSE
     Route: 048
     Dates: start: 20140604, end: 20140618
  2. CISPLATIN. [Suspect]
     Active Substance: CISPLATIN
     Dosage: 50 % DOSE
     Route: 042
     Dates: start: 20140604
  3. CISPLATIN. [Suspect]
     Active Substance: CISPLATIN
     Dosage: 50 % DOSE
     Route: 042
     Dates: start: 20140625
  4. TRASTUZUMAB [Suspect]
     Active Substance: TRASTUZUMAB
     Dosage: LAST DOSE PRIOR TO EVENT: 25/JUN/2014??MAINTENENCE DOSE
     Route: 042
     Dates: start: 20140416
  5. OLMETEC [Concomitant]
     Active Substance: OLMESARTAN MEDOXOMIL
     Indication: HYPERTENSION
     Route: 048
     Dates: start: 201005
  6. DECADRON [Concomitant]
     Active Substance: DEXAMETHASONE
     Indication: NAUSEA
     Route: 048
     Dates: start: 20140315, end: 20140628
  7. HUMULIN R [Concomitant]
     Active Substance: INSULIN HUMAN
     Route: 042
     Dates: start: 20140416, end: 20140417
  8. TRASTUZUMAB [Suspect]
     Active Substance: TRASTUZUMAB
     Route: 042
     Dates: start: 20140509
  9. TRASTUZUMAB [Suspect]
     Active Substance: TRASTUZUMAB
     Route: 042
     Dates: start: 20140604
  10. CISPLATIN. [Suspect]
     Active Substance: CISPLATIN
     Dosage: 50 % DOSE
     Route: 042
     Dates: start: 20140416
  11. HUMULIN R [Concomitant]
     Active Substance: INSULIN HUMAN
     Route: 058
     Dates: start: 20140417, end: 20140604
  12. ATRIX MEDICATED [Concomitant]
     Indication: DRY SKIN
     Route: 061
     Dates: start: 20140405
  13. BLINDED PERTUZUMAB [Suspect]
     Active Substance: PERTUZUMAB
     Dosage: MOST RECENT DOSE PRIOR TO AE: 25/JUN/2014?MAINTENANCE DOSE
     Route: 042
     Dates: start: 20140416
  14. BLINDED PERTUZUMAB [Suspect]
     Active Substance: PERTUZUMAB
     Route: 042
     Dates: start: 20140509
  15. TRASTUZUMAB [Suspect]
     Active Substance: TRASTUZUMAB
     Indication: HER-2 POSITIVE GASTRIC CANCER
     Dosage: LOADING DOSE
     Route: 042
     Dates: start: 20140314, end: 20140314
  16. CAPECITABINE. [Suspect]
     Active Substance: CAPECITABINE
     Indication: HER-2 POSITIVE GASTRIC CANCER
     Dosage: BID
     Route: 048
     Dates: start: 20140314, end: 20140317
  17. CRESTOR [Concomitant]
     Active Substance: ROSUVASTATIN CALCIUM
     Indication: HYPERCHOLESTEROLAEMIA
     Dosage: SELECT IF ONGOING=YES
     Route: 048
     Dates: start: 201311
  18. TENELIA [Concomitant]
     Active Substance: CITALOPRAM HYDROBROMIDE
     Indication: DIABETES MELLITUS
     Route: 048
     Dates: start: 201311
  19. CAPECITABINE. [Suspect]
     Active Substance: CAPECITABINE
     Dosage: 75 % DOSE
     Route: 048
     Dates: start: 20140509, end: 20140523
  20. CAPECITABINE. [Suspect]
     Active Substance: CAPECITABINE
     Dosage: 75 % DOSE
     Route: 048
     Dates: start: 20140625, end: 20140702
  21. DEXART [Concomitant]
     Active Substance: DEXAMETHASONE SODIUM PHOSPHATE
     Indication: NAUSEA
     Route: 042
     Dates: start: 20140314, end: 20140625
  22. ALOXI [Concomitant]
     Active Substance: PALONOSETRON HYDROCHLORIDE
     Indication: NAUSEA
     Route: 042
     Dates: start: 20140314, end: 20140625
  23. MIYA-BM [Concomitant]
     Active Substance: CLOSTRIDIUM BUTYRICUM SPORES STRAIN M-55
     Indication: DIARRHOEA
     Route: 048
     Dates: start: 20140326, end: 20140329
  24. HIRUDOID OINTMENT [Concomitant]
     Indication: PALMAR-PLANTAR ERYTHRODYSAESTHESIA SYNDROME
     Route: 061
     Dates: start: 20140417, end: 20140602
  25. LOPERAMIDE [Concomitant]
     Active Substance: LOPERAMIDE
     Indication: DIARRHOEA
     Route: 048
     Dates: start: 20140624, end: 20140626
  26. BLINDED PERTUZUMAB [Suspect]
     Active Substance: PERTUZUMAB
     Indication: HER-2 POSITIVE GASTRIC CANCER
     Dosage: LOADING DOSE
     Route: 042
     Dates: start: 20140314, end: 20140314
  27. EMEND [Concomitant]
     Active Substance: APREPITANT
     Indication: NAUSEA
     Route: 048
     Dates: start: 20140314, end: 20140625
  28. POLARAMINE [Concomitant]
     Active Substance: DEXCHLORPHENIRAMINE MALEATE
     Indication: PYREXIA
  29. ZANTAC [Concomitant]
     Active Substance: RANITIDINE HYDROCHLORIDE
     Indication: PYREXIA
  30. FERROMIA [Concomitant]
     Active Substance: FERROUS CITRATE
     Indication: IRON DEFICIENCY ANAEMIA
     Dosage: SELECT IF ONGOING=YES
     Route: 048
     Dates: start: 20140624
  31. BLINDED PERTUZUMAB [Suspect]
     Active Substance: PERTUZUMAB
     Route: 042
     Dates: start: 20140604
  32. BLINDED PERTUZUMAB [Suspect]
     Active Substance: PERTUZUMAB
     Route: 042
     Dates: start: 20140625
  33. TRASTUZUMAB [Suspect]
     Active Substance: TRASTUZUMAB
     Route: 042
     Dates: start: 20140625
  34. CAPECITABINE. [Suspect]
     Active Substance: CAPECITABINE
     Dosage: RESTARTED AT A REDUCED DOSE
     Route: 048
     Dates: start: 20140416, end: 20140430
  35. CISPLATIN. [Suspect]
     Active Substance: CISPLATIN
     Indication: HER-2 POSITIVE GASTRIC CANCER
     Dosage: MOST RECENT DOSE PRIOR TO EVENT: 25/6/2014
     Route: 042
     Dates: start: 20140314, end: 20140314
  36. HUMULIN R [Concomitant]
     Active Substance: INSULIN HUMAN
     Indication: TYPE 2 DIABETES MELLITUS
     Route: 058
     Dates: start: 20140330, end: 20140604
  37. ZANTAC [Concomitant]
     Active Substance: RANITIDINE HYDROCHLORIDE
     Indication: CHILLS
     Route: 042
     Dates: start: 20140416, end: 20140625
  38. EMEND [Concomitant]
     Active Substance: APREPITANT
     Indication: NAUSEA
     Route: 048
     Dates: start: 20140315, end: 20140627
  39. SHIN-BIOFERMIN S [Concomitant]
     Indication: DIARRHOEA
     Route: 048
     Dates: start: 20140324
  40. POLARAMINE [Concomitant]
     Active Substance: DEXCHLORPHENIRAMINE MALEATE
     Indication: CHILLS
     Route: 042
     Dates: start: 20140416, end: 20140625

REACTIONS (3)
  - Creatinine renal clearance decreased [Recovering/Resolving]
  - Decreased appetite [Recovered/Resolved]
  - Dehydration [Recovering/Resolving]

NARRATIVE: CASE EVENT DATE: 20140317
